FAERS Safety Report 18147426 (Version 2)
Quarter: 2020Q3

REPORT INFORMATION
  Report Type: Spontaneous
  Country: US (occurrence: US)
  Receive Date: 20200813
  Receipt Date: 20200813
  Transmission Date: 20201103
  Serious: Yes (Other)
  Sender: FDA-Public Use
  Company Number: NVSC2020US219196

PATIENT
  Age: 71 Year
  Sex: Female

DRUGS (2)
  1. ELTROMBOPAG [Suspect]
     Active Substance: ELTROMBOPAG
     Indication: PRODUCT USED FOR UNKNOWN INDICATION
     Dosage: UNK
     Route: 065
  2. TISAGENLECLEUCEL. [Suspect]
     Active Substance: TISAGENLECLEUCEL
     Indication: DIFFUSE LARGE B-CELL LYMPHOMA RECURRENT
     Dosage: (1.1 X10^6) (15 ML)
     Route: 065
     Dates: start: 20190429

REACTIONS (4)
  - Pancytopenia [Recovering/Resolving]
  - Diffuse large B-cell lymphoma [Unknown]
  - Cytokine release syndrome [Recovered/Resolved]
  - Malignant neoplasm progression [Unknown]
